FAERS Safety Report 25675902 (Version 1)
Quarter: 2025Q3

REPORT INFORMATION
  Report Type: Spontaneous
  Country: CN (occurrence: CN)
  Receive Date: 20250813
  Receipt Date: 20250813
  Transmission Date: 20251020
  Serious: Yes (Hospitalization, Disabling)
  Sender: PFIZER
  Company Number: CN-PFIZER INC-PV202500096583

PATIENT
  Age: 48 Year
  Sex: Male
  Weight: 65 kg

DRUGS (4)
  1. FLUCONAZOLE [Suspect]
     Active Substance: FLUCONAZOLE
     Indication: End stage renal disease
     Dosage: 0.3 G, 1X/DAY
     Route: 048
     Dates: start: 20250710, end: 20250714
  2. FLUCONAZOLE [Suspect]
     Active Substance: FLUCONAZOLE
     Indication: Prophylaxis
     Dosage: 0.15 G, 1X/DAY
     Route: 048
     Dates: start: 20250714, end: 20250802
  3. DIFLUCAN [Suspect]
     Active Substance: FLUCONAZOLE
     Indication: End stage renal disease
     Dosage: 0.2 G, 1X/DAY
     Route: 041
     Dates: start: 20250703, end: 20250709
  4. DIFLUCAN [Suspect]
     Active Substance: FLUCONAZOLE
     Indication: Prophylaxis

REACTIONS (1)
  - Renal impairment [Recovering/Resolving]

NARRATIVE: CASE EVENT DATE: 20250730
